FAERS Safety Report 8500995-0 (Version None)
Quarter: 2012Q3

REPORT INFORMATION
  Report Type: 
  Country: None (occurrence: None)
  Receive Date: 20120710
  Receipt Date: 20120705
  Transmission Date: 20120928
  Serious: Yes (Hospitalization)
  Sender: FDA-Public Use
  Company Number: FR-ABBOTT-12P-056-0922600-00

PATIENT
  Age: 57 Year
  Sex: Female

DRUGS (5)
  1. DEPAKOTE [Suspect]
     Route: 048
     Dates: start: 20120313, end: 20120319
  2. ATARAX [Concomitant]
     Indication: PRODUCT USED FOR UNKNOWN INDICATION
     Dates: start: 20120309
  3. SOLIAN [Concomitant]
     Indication: PRODUCT USED FOR UNKNOWN INDICATION
     Dates: start: 20120313
  4. DEPAKOTE [Suspect]
     Indication: MANIA
     Route: 048
     Dates: start: 20120309, end: 20120312
  5. CEFTRIAXONE [Suspect]
     Indication: LUNG DISORDER
     Route: 041
     Dates: start: 20120309, end: 20120315

REACTIONS (1)
  - MIXED LIVER INJURY [None]
